FAERS Safety Report 8756524 (Version 2)
Quarter: 2013Q3

REPORT INFORMATION
  Report Type: Spontaneous
  Country: US (occurrence: None)
  Receive Date: 20120814
  Receipt Date: 20130815
  Transmission Date: 20140515
  Serious: Yes (Other)
  Sender: FDA-Public Use
  Company Number: ADR-2012-01447

PATIENT
  Sex: Male

DRUGS (2)
  1. LIORESAL INTRATHECAL [Suspect]
     Indication: MUSCLE SPASTICITY
  2. LIORESAL INTRATHECAL [Suspect]
     Indication: SPINAL CORD INJURY

REACTIONS (7)
  - Drug withdrawal syndrome [None]
  - Pruritus [None]
  - Device battery issue [None]
  - Muscle tightness [None]
  - Muscle spasticity [None]
  - Bladder disorder [None]
  - Functional gastrointestinal disorder [None]
